FAERS Safety Report 20611914 (Version 1)
Quarter: 2022Q1

REPORT INFORMATION
  Report Type: Report from Study
  Country: GB (occurrence: GB)
  Receive Date: 20220318
  Receipt Date: 20220318
  Transmission Date: 20220424
  Serious: Yes (Life-Threatening, Other)
  Sender: FDA-Public Use
  Company Number: GB-MHRA-MED-202202210103251060-1CXR1

PATIENT
  Age: 63 Year
  Sex: Female
  Weight: 49 kg

DRUGS (2)
  1. OLANZAPINE [Suspect]
     Active Substance: OLANZAPINE
     Indication: Product used for unknown indication
     Dosage: UNK
     Dates: start: 20220130, end: 20220219
  2. RAMIPRIL [Concomitant]
     Active Substance: RAMIPRIL
     Indication: Cardiac failure
     Dosage: UNK
     Dates: start: 20200103

REACTIONS (28)
  - Coma [Recovering/Resolving]
  - Syncope [Unknown]
  - Influenza like illness [Unknown]
  - Dyspnoea [Unknown]
  - Hyperhidrosis [Unknown]
  - Hypopnoea [Unknown]
  - Hypertension [Unknown]
  - Swollen tongue [Unknown]
  - Ear pain [Unknown]
  - Muscle spasms [Unknown]
  - Anal haemorrhage [Unknown]
  - Incontinence [Unknown]
  - Eye pain [Unknown]
  - Psychomotor hyperactivity [Unknown]
  - Logorrhoea [Unknown]
  - Chronic respiratory disease [Unknown]
  - Oedema peripheral [Unknown]
  - Spinal pain [Unknown]
  - Obstructive airways disorder [Unknown]
  - Bronchial hyperreactivity [Unknown]
  - Vestibular migraine [Unknown]
  - Seizure [Unknown]
  - Swelling face [Unknown]
  - Dysarthria [Unknown]
  - Vision blurred [Unknown]
  - Asthenia [Unknown]
  - Insomnia [Unknown]
  - Vomiting [Unknown]

NARRATIVE: CASE EVENT DATE: 20220212
